FAERS Safety Report 20794122 (Version 1)
Quarter: 2022Q2

REPORT INFORMATION
  Report Type: Spontaneous
  Country: GB (occurrence: GB)
  Receive Date: 20220506
  Receipt Date: 20220506
  Transmission Date: 20220720
  Serious: Yes (Other)
  Sender: FDA-Public Use
  Company Number: GB-MHRA-TPP19334578C8033751YC1650471069937

PATIENT
  Age: 50 Year
  Sex: Female
  Weight: 120 kg

DRUGS (6)
  1. TOPIRAMATE [Suspect]
     Active Substance: TOPIRAMATE
     Indication: Product used for unknown indication
     Dosage: 50 MILLIGRAM, TWO TIMES A DAY (TITRATE UP BY 25MG...)
     Route: 065
     Dates: start: 20210923, end: 20220420
  2. Adcal [Concomitant]
     Indication: Product used for unknown indication
     Dosage: 2 DOSAGE FORM, TWO TIMES A DAY
     Route: 065
     Dates: start: 20210923
  3. CITALOPRAM [Concomitant]
     Active Substance: CITALOPRAM HYDROBROMIDE
     Indication: Affective disorder
     Dosage: 2 DOSAGE FORM, ONCE A DAY (TWO TO BE TAKEN EACH DAY FOR YOUR MOOD)
     Route: 065
     Dates: start: 20210923
  4. HYDROXYZINE [Concomitant]
     Active Substance: HYDROXYZINE HYDROCHLORIDE
     Indication: Product used for unknown indication
     Dosage: UNK (1-2 NIGHT PRN)
     Route: 065
     Dates: start: 20210923
  5. SUMATRIPTAN [Concomitant]
     Active Substance: SUMATRIPTAN
     Indication: Product used for unknown indication
     Dosage: UNK (TAKE ONE TABLET FOR MIGRAINE ATTACK.  IF SYMPTO...)
     Route: 065
     Dates: start: 20210923
  6. TRAMADOL [Concomitant]
     Active Substance: TRAMADOL
     Indication: Product used for unknown indication
     Dosage: UNK (TAKE 1 OR 2 EVERY 4-6 HRS)
     Route: 065
     Dates: start: 20220228, end: 20220328

REACTIONS (1)
  - Visual impairment [Unknown]

NARRATIVE: CASE EVENT DATE: 20220420
